FAERS Safety Report 15402699 (Version 1)
Quarter: 2018Q3

REPORT INFORMATION
  Report Type: Spontaneous
  Country: US (occurrence: US)
  Receive Date: 20180919
  Receipt Date: 20180919
  Transmission Date: 20181010
  Serious: No
  Sender: FDA-Public Use
  Company Number: US-AMNEAL PHARMACEUTICALS-2017AMN00973

PATIENT
  Age: 75 Year
  Sex: Male

DRUGS (3)
  1. HYDROCODONE AND ACETAMINOPHEN [Suspect]
     Active Substance: ACETAMINOPHEN\HYDROCODONE
     Indication: SPINAL PAIN
     Dosage: 1 TABLETS, AS NEEDED
     Route: 048
     Dates: start: 201606
  2. NEURONTIN [Concomitant]
     Active Substance: GABAPENTIN
     Dosage: UNKNOWN, UNK
     Route: 048
  3. AMBIEN [Concomitant]
     Active Substance: ZOLPIDEM TARTRATE
     Dosage: UNKNOWN, UNK
     Route: 048

REACTIONS (1)
  - Drug ineffective [Unknown]

NARRATIVE: CASE EVENT DATE: 20170802
